FAERS Safety Report 21394058 (Version 1)
Quarter: 2022Q3

REPORT INFORMATION
  Report Type: Spontaneous
  Country: US (occurrence: US)
  Receive Date: 20220930
  Receipt Date: 20220930
  Transmission Date: 20221027
  Serious: No
  Sender: FDA-Public Use
  Company Number: US-ORGANON-O2209USA000750

PATIENT
  Age: 71 Year
  Sex: Female

DRUGS (7)
  1. REMERON [Suspect]
     Active Substance: MIRTAZAPINE
     Indication: Pruritus
     Dosage: 45 MILLIGRAM, QD
     Route: 048
  2. REMERON [Suspect]
     Active Substance: MIRTAZAPINE
     Indication: Hyperaesthesia
  3. AMITRIPTYLINE [Suspect]
     Active Substance: AMITRIPTYLINE
     Indication: Pruritus
     Dosage: 100 MILLIGRAM, QD
  4. AMITRIPTYLINE [Suspect]
     Active Substance: AMITRIPTYLINE
     Indication: Hyperaesthesia
  5. DOXEPIN [Concomitant]
     Active Substance: DOXEPIN
     Indication: Pruritus
     Dosage: 20 MILLIGRAM, QD
  6. DOXEPIN [Concomitant]
     Active Substance: DOXEPIN
     Indication: Hyperaesthesia
     Dosage: INCREASE TO 75 MILLIGRAM, QD
  7. DOXEPIN [Concomitant]
     Active Substance: DOXEPIN
     Dosage: 150 MILLIGRAM, QD

REACTIONS (1)
  - Product use in unapproved indication [Unknown]
